FAERS Safety Report 5663255-1 (Version None)
Quarter: 2008Q1

REPORT INFORMATION
  Report Type: 
  Country: None (occurrence: None)
  Receive Date: 20080310
  Receipt Date: 20080226
  Transmission Date: 20080703
  Serious: Yes (Hospitalization)
  Sender: FDA-Public Use
  Company Number: DSM-2008-00239

PATIENT
  Age: 81 Year
  Sex: Female

DRUGS (9)
  1. OLMESARTAN MEDOXOMIL [Suspect]
     Indication: HYPERTENSION
     Dosage: 40 MG (40 MG, 1 IN 1 D), ORAL; 40 MG (40 MG, 1 IN 1 D), ORAL; 40 MG (40 MG, 1 IN 1 D), ORAL
     Route: 048
     Dates: start: 20070201, end: 20080101
  2. OLMESARTAN MEDOXOMIL [Suspect]
     Indication: HYPERTENSION
     Dosage: 40 MG (40 MG, 1 IN 1 D), ORAL; 40 MG (40 MG, 1 IN 1 D), ORAL; 40 MG (40 MG, 1 IN 1 D), ORAL
     Route: 048
     Dates: start: 20080215, end: 20080215
  3. OLMESARTAN MEDOXOMIL [Suspect]
     Indication: HYPERTENSION
     Dosage: 40 MG (40 MG, 1 IN 1 D), ORAL; 40 MG (40 MG, 1 IN 1 D), ORAL; 40 MG (40 MG, 1 IN 1 D), ORAL
     Route: 048
     Dates: start: 20080221, end: 20080221
  4. CODEINE (CODEINE) (- - ONGOING CODEINE) [Concomitant]
  5. ACETYLSALICYLIC ACID SRT [Concomitant]
  6. LORAZEPAM [Concomitant]
  7. PARACETAMOL (PARACETAMOL) (PARACETAMOL) [Concomitant]
  8. BISOPROLOLE (BISOPROLOL) (BISOPROLOL) [Concomitant]
  9. OMEPRAZOLE [Concomitant]

REACTIONS (4)
  - DEHYDRATION [None]
  - GASTROENTERITIS [None]
  - NASOPHARYNGITIS [None]
  - SYNCOPE [None]
